FAERS Safety Report 24778946 (Version 3)
Quarter: 2025Q1

REPORT INFORMATION
  Report Type: Report from Study
  Country: US (occurrence: US)
  Receive Date: 20241226
  Receipt Date: 20250218
  Transmission Date: 20250409
  Serious: Yes (Hospitalization)
  Sender: ABBVIE
  Company Number: US-ABBVIE-6060491

PATIENT
  Age: 49 Year
  Sex: Female

DRUGS (1)
  1. SKYRIZI [Suspect]
     Active Substance: RISANKIZUMAB-RZAA
     Indication: Crohn^s disease
     Route: 058
     Dates: start: 20240205, end: 20241229

REACTIONS (9)
  - Obstruction [Recovered/Resolved]
  - Inflammatory marker increased [Unknown]
  - Constipation [Unknown]
  - Thyroid hormones decreased [Recovering/Resolving]
  - Fatigue [Unknown]
  - Arthralgia [Unknown]
  - Urinary tract infection [Unknown]
  - Crohn^s disease [Unknown]
  - Arthritis [Unknown]

NARRATIVE: CASE EVENT DATE: 20240101
